FAERS Safety Report 24706024 (Version 1)
Quarter: 2024Q4

REPORT INFORMATION
  Report Type: Spontaneous
  Country: SE (occurrence: SE)
  Receive Date: 20241206
  Receipt Date: 20241206
  Transmission Date: 20250115
  Serious: Yes (Other)
  Sender: B BRAUN
  Company Number: SE-B.Braun Medical Inc.-2166556

PATIENT
  Age: 37 Year
  Sex: Female

DRUGS (13)
  1. SODIUM CHLORIDE [Suspect]
     Active Substance: SODIUM CHLORIDE
  2. CAFFEINE\EPHEDRINE\PROMETHAZINE [Concomitant]
     Active Substance: CAFFEINE\EPHEDRINE\PROMETHAZINE
  3. BEVIPLEX FORTE [Concomitant]
  4. ERGOCALCIFEROL\PHYTONADIONE\RETINOL\TOCOPHEROL [Concomitant]
     Active Substance: ERGOCALCIFEROL\PHYTONADIONE\RETINOL\TOCOPHEROL
  5. Soluvit (Solo) [Concomitant]
  6. PROMETHAZINE HYDROCHLORIDE\THIOUREA [Concomitant]
     Active Substance: PROMETHAZINE HYDROCHLORIDE\THIOUREA
  7. MELATONIN [Concomitant]
     Active Substance: MELATONIN
  8. AMINO ACIDS\DEXTROSE\ELECTROLYTES NOS\SOYBEAN OIL [Concomitant]
     Active Substance: AMINO ACIDS\DEXTROSE\ELECTROLYTES NOS\SOYBEAN OIL
  9. ELECTROLYTES NOS\MINERALS [Concomitant]
     Active Substance: ELECTROLYTES NOS\MINERALS
  10. OMEPRAZOL APOFRI [Concomitant]
  11. NATRIUMKLORID ABBOXIA (SODIUM CHLORIDE ABBOXIA) [Concomitant]
  12. KALIUMKLORID ORIFARM (POTASSIUM CHLORIDE ORIFARM) [Concomitant]
  13. Natriumklorid Baxter Viaflo (Sodium chloride Baxter Viaflo) [Concomitant]

REACTIONS (7)
  - Burning sensation [Unknown]
  - Maternal exposure during pregnancy [Unknown]
  - Wrong product administered [Unknown]
  - Product packaging confusion [Unknown]
  - Fear of injection [Unknown]
  - Product appearance confusion [Unknown]
  - Injection site pain [Unknown]
